FAERS Safety Report 9372113 (Version 1)
Quarter: 2013Q2

REPORT INFORMATION
  Report Type: Spontaneous
  Country: US (occurrence: US)
  Receive Date: 20130627
  Receipt Date: 20130627
  Transmission Date: 20140414
  Serious: No
  Sender: FDA-Public Use
  Company Number: US-009507513-1305USA002410

PATIENT
  Age: 7 Year
  Sex: Female

DRUGS (1)
  1. CLARITIN ORAL SOLUTION [Suspect]
     Indication: HYPERSENSITIVITY
     Dosage: 10 MG, BID
     Route: 048
     Dates: start: 20130422, end: 20130422

REACTIONS (2)
  - Overdose [Unknown]
  - No adverse event [Unknown]
